FAERS Safety Report 6649843-4 (Version None)
Quarter: 2010Q1

REPORT INFORMATION
  Report Type: 
  Country: None (occurrence: None)
  Receive Date: 20100325
  Receipt Date: 20100318
  Transmission Date: 20100710
  Serious: Yes (Hospitalization)
  Sender: FDA-Public Use
  Company Number: US-BIOGENIDEC-2010BI004542

PATIENT
  Sex: Female

DRUGS (1)
  1. TYSABRI [Suspect]
     Indication: MULTIPLE SCLEROSIS
     Route: 042
     Dates: start: 20090904, end: 20100108

REACTIONS (4)
  - FACIAL PALSY [None]
  - HEMIPLEGIA [None]
  - HEREDITARY ANGIOEDEMA [None]
  - RESPIRATORY DISORDER [None]
